FAERS Safety Report 13829381 (Version 1)
Quarter: 2017Q3

REPORT INFORMATION
  Report Type: Spontaneous
  Country: US (occurrence: US)
  Receive Date: 20170803
  Receipt Date: 20170803
  Transmission Date: 20171127
  Serious: No
  Sender: FDA-Public Use
  Company Number: None

PATIENT
  Age: 24 Year
  Sex: Female
  Weight: 58.5 kg

DRUGS (3)
  1. CETRIZINE [Concomitant]
     Active Substance: CETIRIZINE HYDROCHLORIDE
  2. GIANVI BIRTH CONTROL [Concomitant]
  3. CARMEX CLASSIC LIP BALM MEDICATED [Suspect]
     Active Substance: CAMPHOR (SYNTHETIC)\PETROLATUM
     Indication: LIP DISORDER
     Route: 061
     Dates: start: 20170801, end: 20170803

REACTIONS (2)
  - Skin exfoliation [None]
  - Skin sensitisation [None]

NARRATIVE: CASE EVENT DATE: 20170801
